FAERS Safety Report 6057620-0 (Version None)
Quarter: 2009Q1

REPORT INFORMATION
  Report Type: 
  Country: None (occurrence: None)
  Receive Date: 20090129
  Receipt Date: 20081001
  Transmission Date: 20090719
  Serious: No
  Sender: FDA-Public Use
  Company Number: US-BAUSCH-2008BL003836

PATIENT
  Age: 43 Year
  Sex: Female

DRUGS (9)
  1. DESMOPRESSIN ACETATE [Suspect]
     Indication: DIABETES INSIPIDUS
     Route: 045
     Dates: start: 20080501, end: 20080813
  2. OXYCONTIN [Concomitant]
  3. LOTREL [Concomitant]
  4. ARICEPT /JPN/ [Concomitant]
  5. ZANAFLEX [Concomitant]
  6. LORAZEPAM [Concomitant]
  7. CARISOPRODOL [Concomitant]
  8. PROMETHAZINE [Concomitant]
  9. LYRICA [Concomitant]

REACTIONS (1)
  - DRUG INEFFECTIVE [None]
